FAERS Safety Report 18255170 (Version 2)
Quarter: 2020Q3

REPORT INFORMATION
  Report Type: Spontaneous
  Country: US (occurrence: US)
  Receive Date: 20200910
  Receipt Date: 20200911
  Transmission Date: 20201103
  Serious: No
  Sender: FDA-Public Use
  Company Number: US-PFIZER INC-2020347608

PATIENT
  Age: 76 Year
  Sex: Female

DRUGS (1)
  1. IBRANCE [Suspect]
     Active Substance: PALBOCICLIB
     Dosage: UNK

REACTIONS (9)
  - Platelet count decreased [Unknown]
  - Cognitive disorder [Unknown]
  - Memory impairment [Unknown]
  - Pelvic girdle pain [Unknown]
  - Back pain [Unknown]
  - Pain [Unknown]
  - Pubic pain [Unknown]
  - Arthralgia [Unknown]
  - Abdominal pain lower [Unknown]
